FAERS Safety Report 9901307 (Version 2)
Quarter: 2014Q1

REPORT INFORMATION
  Report Type: Spontaneous
  Country: JP (occurrence: JP)
  Receive Date: 20140217
  Receipt Date: 20140217
  Transmission Date: 20141002
  Serious: Yes (Other)
  Sender: FDA-Public Use
  Company Number: JP-UCBSA-103074

PATIENT
  Sex: Female

DRUGS (3)
  1. E KEPPRA [Suspect]
     Indication: EPILEPSY
     Route: 048
  2. PHENOBAL [Concomitant]
  3. DEPAKENE [Concomitant]
     Route: 048

REACTIONS (3)
  - Selective abortion [Unknown]
  - Peripheral coldness [Unknown]
  - Exposure during pregnancy [Recovered/Resolved]
